FAERS Safety Report 9619345 (Version 2)
Quarter: 2013Q4

REPORT INFORMATION
  Report Type: Spontaneous
  Country: CA (occurrence: CA)
  Receive Date: 20131014
  Receipt Date: 20131118
  Transmission Date: 20140711
  Serious: Yes (Death)
  Sender: FDA-Public Use
  Company Number: CA-ROCHE-1288618

PATIENT
  Sex: Male

DRUGS (11)
  1. LUCENTIS [Suspect]
     Indication: DIABETIC RETINAL OEDEMA
     Route: 050
     Dates: start: 20131001
  2. LACTULOSE [Concomitant]
  3. QUETIAPINE [Concomitant]
  4. ARICEPT [Concomitant]
  5. DOCUSATE SODIUM [Concomitant]
  6. VITAMIN B12 [Concomitant]
  7. DOMPERIDONE [Concomitant]
  8. ALENDRONATE [Concomitant]
  9. PANTOPRAZOLE [Concomitant]
  10. JANUMET [Concomitant]
  11. LORAZEPAM [Concomitant]

REACTIONS (1)
  - Death [Fatal]
